FAERS Safety Report 7163444-3 (Version None)
Quarter: 2010Q4

REPORT INFORMATION
  Report Type: 
  Country: None (occurrence: None)
  Receive Date: 20101215
  Receipt Date: 20100419
  Transmission Date: 20110411
  Serious: Yes (Other)
  Sender: FDA-Public Use
  Company Number: US-PFIZER INC-2010043020

PATIENT
  Sex: Female
  Weight: 46.712 kg

DRUGS (2)
  1. LYRICA [Suspect]
     Indication: NEURALGIA
     Dosage: 75 MG, 1X/DAY
     Route: 048
     Dates: start: 20100301, end: 20100301
  2. VALTREX [Concomitant]
     Indication: HERPES VIRUS INFECTION
     Dosage: 100 MG, 1X/DAY
     Dates: start: 20090101

REACTIONS (2)
  - HYPERSENSITIVITY [None]
  - OROPHARYNGEAL PAIN [None]
